FAERS Safety Report 15522659 (Version 3)
Quarter: 2018Q4

REPORT INFORMATION
  Report Type: Spontaneous
  Country: US (occurrence: US)
  Receive Date: 20181017
  Receipt Date: 20181107
  Transmission Date: 20190205
  Serious: Yes (Hospitalization)
  Sender: FDA-Public Use
  Company Number: US-BIOMARINAP-US-2018-120256

PATIENT
  Sex: Male
  Weight: 90.5 kg

DRUGS (2)
  1. MEDROL [Concomitant]
     Active Substance: METHYLPREDNISOLONE
     Indication: PRODUCT USED FOR UNKNOWN INDICATION
     Dosage: 4 MILLIGRAM
     Route: 048
  2. PALYNZIQ [Suspect]
     Active Substance: PEGVALIASE-PQPZ
     Indication: PHENYLKETONURIA
     Dosage: 60 MILLIGRAM
     Route: 058
     Dates: start: 20161212

REACTIONS (13)
  - Viral infection [Recovered/Resolved]
  - Tremor [Unknown]
  - Throat tightness [Recovered/Resolved]
  - Haematocrit increased [Recovered/Resolved]
  - Hypoaesthesia [Unknown]
  - Dizziness [Recovered/Resolved]
  - Pyrexia [Recovered/Resolved]
  - Blood lactic acid increased [Recovered/Resolved]
  - Nausea [Recovered/Resolved]
  - Haemoglobin increased [Recovered/Resolved]
  - Myalgia [Recovered/Resolved]
  - Metabolic acidosis [Recovered/Resolved]
  - Dyspnoea [Recovered/Resolved]
